FAERS Safety Report 7017904-6 (Version None)
Quarter: 2010Q3

REPORT INFORMATION
  Report Type: 
  Country: None (occurrence: None)
  Receive Date: 20100928
  Receipt Date: 20100915
  Transmission Date: 20110219
  Serious: Yes (Hospitalization)
  Sender: FDA-Public Use
  Company Number: US-ELI_LILLY_AND_COMPANY-US201009004499

PATIENT
  Age: 65 Year
  Sex: Female

DRUGS (12)
  1. CYMBALTA [Suspect]
     Indication: DEPRESSION
     Dosage: 20 MG, UNK
  2. CYMBALTA [Suspect]
     Dosage: 30 MG, UNK
  3. CYMBALTA [Suspect]
     Dosage: 20 MG, UNK
  4. RISPERDAL [Concomitant]
  5. ABILIFY [Concomitant]
     Dosage: 5 MG, UNK
  6. SPIRIVA [Concomitant]
  7. ALBUTEROL [Concomitant]
  8. FOSAMAX [Concomitant]
  9. CALCIUM [Concomitant]
  10. VITAMIN D [Concomitant]
  11. LORTAB [Concomitant]
     Dosage: UNK, AS NEEDED
  12. SSRI [Concomitant]

REACTIONS (2)
  - CHRONIC OBSTRUCTIVE PULMONARY DISEASE [None]
  - LIVER FUNCTION TEST ABNORMAL [None]
